FAERS Safety Report 22974206 (Version 3)
Quarter: 2024Q1

REPORT INFORMATION
  Report Type: Report from Study
  Country: US (occurrence: US)
  Receive Date: 20230923
  Receipt Date: 20240316
  Transmission Date: 20240410
  Serious: No
  Sender: FDA-Public Use
  Company Number: US-002147023-NVSC2023US202601

PATIENT
  Sex: Female

DRUGS (2)
  1. COSENTYX [Suspect]
     Active Substance: SECUKINUMAB
     Indication: Product used for unknown indication
     Dosage: UNK
     Route: 065
  2. TRAVATAN Z [Suspect]
     Active Substance: TRAVOPROST
     Indication: Product used for unknown indication
     Route: 065

REACTIONS (3)
  - Osteoarthritis [Unknown]
  - Arthralgia [Unknown]
  - Headache [Unknown]
